FAERS Safety Report 8223242-6 (Version None)
Quarter: 2012Q1

REPORT INFORMATION
  Report Type: 
  Country: None (occurrence: None)
  Receive Date: 20120321
  Receipt Date: 20120222
  Transmission Date: 20120608
  Serious: No
  Sender: FDA-Public Use
  Company Number: JP-ROCHE-1047765

PATIENT
  Age: 40 Year
  Sex: Female

DRUGS (4)
  1. SP [Concomitant]
     Dosage: DOSAGE IS UNCERTAIN.
     Route: 049
  2. AZUNOL [Concomitant]
     Dosage: DOSAGE IS UNCERTAIN.
     Route: 049
  3. TAMIFLU [Suspect]
     Route: 048
     Dates: start: 20120222, end: 20120222
  4. TAMIFLU [Suspect]
     Indication: PRODUCT USED FOR UNKNOWN INDICATION
     Route: 048
     Dates: start: 20120221, end: 20120221

REACTIONS (3)
  - OVERDOSE [None]
  - MATERNAL EXPOSURE DURING PREGNANCY [None]
  - VOMITING [None]
